FAERS Safety Report 5040181-2 (Version None)
Quarter: 2006Q2

REPORT INFORMATION
  Report Type: 
  Country: None (occurrence: None)
  Receive Date: 20060630
  Receipt Date: 20060616
  Transmission Date: 20061013
  Serious: Yes (Hospitalization)
  Sender: FDA-Public Use
  Company Number: GBWYE741816JUN06

PATIENT
  Age: 12 Year
  Sex: Female

DRUGS (18)
  1. ENBREL [Suspect]
     Indication: PSORIATIC ARTHROPATHY
     Route: 058
     Dates: start: 20021030, end: 20041208
  2. METHOTREXATE [Suspect]
     Dosage: UNKNOWN
     Route: 048
     Dates: end: 20050228
  3. METHOTREXATE [Suspect]
     Route: 048
     Dates: start: 20050301
  4. CEPHALEXIN [Concomitant]
     Route: 048
     Dates: start: 20050501
  5. CELECOXIB [Concomitant]
     Dates: start: 20041001
  6. CYCLOSPORINE [Concomitant]
     Route: 048
     Dates: start: 20040801
  7. CODEINE [Concomitant]
     Route: 048
     Dates: start: 20041001
  8. DICLOFENAC [Concomitant]
     Route: 048
     Dates: start: 20011101
  9. ERGOCALCIFEROL [Concomitant]
     Route: 048
  10. ETHINYL ESTRADIOL TAB [Concomitant]
     Dates: start: 20050201
  11. IBUPROFEN [Concomitant]
     Route: 048
     Dates: start: 20040601
  12. REMICADE [Concomitant]
     Dosage: EVERY 6 WEEKS, FREQUENCY UNKNOWN
     Route: 042
     Dates: start: 20041208
  13. METHYLPREDNISOLONE [Concomitant]
     Dosage: 750 MG FREQUECY UNKNOWN
     Dates: start: 20050201
  14. OMEPRAZOLE [Concomitant]
     Route: 048
     Dates: start: 20020601
  15. PREDNISOLONE [Concomitant]
     Route: 048
     Dates: start: 20050101, end: 20050301
  16. PREDNISOLONE [Concomitant]
     Route: 048
     Dates: start: 20050301
  17. TRIAMCINOLONE ACETONIDE [Concomitant]
     Dosage: UNKNOWN
     Route: 024
     Dates: start: 20050124
  18. CALCIUM CARBONATE [Concomitant]
     Dosage: UNKNOWN
     Route: 048
     Dates: start: 20020601

REACTIONS (3)
  - ABDOMINAL PAIN [None]
  - FURUNCLE [None]
  - MALAISE [None]
